FAERS Safety Report 8057065-8 (Version None)
Quarter: 2012Q1

REPORT INFORMATION
  Report Type: 
  Country: None (occurrence: None)
  Receive Date: 20120119
  Receipt Date: 20120116
  Transmission Date: 20120608
  Serious: Yes (Congenital Anomaly, Other)
  Sender: FDA-Public Use
  Company Number: FR-ABBOTT-11P-056-0699309-00

PATIENT
  Age: 1 Day
  Sex: Male

DRUGS (1)
  1. DEPAKENE [Suspect]
     Indication: MATERNAL EXPOSURE TIMING UNSPECIFIED
     Route: 064

REACTIONS (10)
  - POOR SUCKING REFLEX [None]
  - FOETAL EXPOSURE DURING PREGNANCY [None]
  - CARDIAC MURMUR [None]
  - VENTRICULAR SEPTAL DEFECT [None]
  - HYPERTELORISM OF ORBIT [None]
  - EXCESSIVE SKIN [None]
  - HYPOTONIA [None]
  - CONGENITAL HAIR DISORDER [None]
  - DYSMORPHISM [None]
  - LOW SET EARS [None]
